FAERS Safety Report 4479232-2 (Version None)
Quarter: 2004Q4

REPORT INFORMATION
  Report Type: 
  Country: None (occurrence: None)
  Receive Date: 20041015
  Receipt Date: 20041006
  Transmission Date: 20050328
  Serious: Yes (Life-Threatening, Hospitalization)
  Sender: FDA-Public Use
  Company Number: 2004AP05119

PATIENT
  Age: 55 Year
  Sex: Male
  Weight: 50 kg

DRUGS (8)
  1. SEROQUEL [Suspect]
     Indication: PARKINSON'S DISEASE
     Dosage: 25 MG DAILY PO
     Route: 048
     Dates: start: 20040915, end: 20040924
  2. AMOBAN [Suspect]
     Dosage: 7.5 MG DAILY PO
     Route: 048
     Dates: start: 20040818, end: 20040924
  3. LORAZEPAM [Concomitant]
  4. MENESIT [Concomitant]
  5. CABERGOLINE [Concomitant]
  6. PERMAX [Concomitant]
  7. METLIFINE [Concomitant]
  8. RISUMIC [Concomitant]

REACTIONS (11)
  - ALANINE AMINOTRANSFERASE INCREASED [None]
  - ASPARTATE AMINOTRANSFERASE INCREASED [None]
  - BLOOD ALKALINE PHOSPHATASE INCREASED [None]
  - BLOOD LACTATE DEHYDROGENASE INCREASED [None]
  - DEPRESSED LEVEL OF CONSCIOUSNESS [None]
  - GAMMA-GLUTAMYLTRANSFERASE INCREASED [None]
  - HEPAPLASTIN ABNORMAL [None]
  - HYPOGLYCAEMIC COMA [None]
  - LIVER DISORDER [None]
  - MALNUTRITION [None]
  - PROTHROMBIN TIME PROLONGED [None]
